FAERS Safety Report 4516689-2 (Version None)
Quarter: 2004Q4

REPORT INFORMATION
  Report Type: 
  Country: None (occurrence: None)
  Receive Date: 20041130
  Receipt Date: 20041119
  Transmission Date: 20050328
  Serious: Yes (Hospitalization)
  Sender: FDA-Public Use
  Company Number: 04-0089PO

PATIENT
  Age: 22 Year
  Sex: Female

DRUGS (3)
  1. MEFENAMIC ACID [Suspect]
     Indication: DYSMENORRHOEA
     Dosage: 250 MG, PO
     Route: 048
     Dates: start: 20041027, end: 20041101
  2. AMOXICILLIN [Concomitant]
  3. FLUCONAZOLE [Concomitant]

REACTIONS (2)
  - HAEMATEMESIS [None]
  - HAEMOPTYSIS [None]
